FAERS Safety Report 15279701 (Version 1)
Quarter: 2018Q3

REPORT INFORMATION
  Report Type: Spontaneous
  Country: US (occurrence: US)
  Receive Date: 20180730
  Receipt Date: 20180730
  Transmission Date: 20181010
  Serious: Yes (Death, Disabling)
  Sender: FDA-Public Use
  Company Number: None

PATIENT
  Age: 69 Year
  Sex: Female
  Weight: 87.75 kg

DRUGS (2)
  1. AKYNZEO [Concomitant]
     Active Substance: NETUPITANT\PALONOSETRON HYDROCHLORIDE
     Dates: start: 20180423, end: 20180729
  2. AKYNZEO [Suspect]
     Active Substance: NETUPITANT\PALONOSETRON HYDROCHLORIDE
     Indication: METASTASES TO ABDOMINAL CAVITY
     Dosage: ?          OTHER FREQUENCY:PRIOR TO CHEMO;?
     Route: 048
     Dates: start: 20180423, end: 20180729

REACTIONS (1)
  - Death [None]

NARRATIVE: CASE EVENT DATE: 20180729
